FAERS Safety Report 7598415-6 (Version None)
Quarter: 2011Q3

REPORT INFORMATION
  Report Type: 
  Country: None (occurrence: None)
  Receive Date: 20110708
  Receipt Date: 20110629
  Transmission Date: 20111222
  Serious: Yes (Congenital Anomaly, Other)
  Sender: FDA-Public Use
  Company Number: CA-ABBOTT-11P-028-0713190-00

PATIENT
  Weight: 3.55 kg

DRUGS (4)
  1. ABACAVIR [Suspect]
     Indication: MATERNAL EXPOSURE DURING PREGNANCY
     Route: 064
  2. REYATAZ [Suspect]
     Indication: MATERNAL EXPOSURE DURING PREGNANCY
     Route: 064
  3. NORVIR [Suspect]
     Indication: MATERNAL EXPOSURE DURING PREGNANCY
     Route: 064
  4. LAMIVUDINE [Suspect]
     Indication: MATERNAL EXPOSURE DURING PREGNANCY
     Route: 064

REACTIONS (16)
  - LIMB HYPOPLASIA CONGENITAL [None]
  - FEEDING DISORDER NEONATAL [None]
  - MATERNAL EXPOSURE DURING PREGNANCY [None]
  - HIGH ARCHED PALATE [None]
  - GASTROOESOPHAGEAL REFLUX DISEASE [None]
  - CONGENITAL BOWING OF LONG BONES [None]
  - ADACTYLY [None]
  - SKELETON DYSPLASIA [None]
  - RHINORRHOEA [None]
  - EYE DISCHARGE [None]
  - HYPERBILIRUBINAEMIA NEONATAL [None]
  - PILONIDAL CYST CONGENITAL [None]
  - TACHYPNOEA [None]
  - HAND DEFORMITY [None]
  - LIMB MALFORMATION [None]
  - VOMITING [None]
